FAERS Safety Report 9628296 (Version 3)
Quarter: 2013Q4

REPORT INFORMATION
  Report Type: Spontaneous
  Country: US (occurrence: US)
  Receive Date: 20131017
  Receipt Date: 20131126
  Transmission Date: 20140711
  Serious: Yes (Hospitalization)
  Sender: FDA-Public Use
  Company Number: US-BRISTOL-MYERS SQUIBB COMPANY-19209337

PATIENT
  Age: 46 Year
  Sex: Female

DRUGS (13)
  1. BYETTA [Suspect]
     Indication: TYPE 2 DIABETES MELLITUS
     Dates: start: 201305, end: 20130816
  2. METFORMIN HCL [Suspect]
  3. AMLODIPINE [Concomitant]
  4. SIMVASTATIN [Concomitant]
  5. VITAMIN D [Concomitant]
  6. PROMETHAZINE [Concomitant]
  7. VITAMIN D [Concomitant]
     Dosage: 1DF:50000 UNITS
  8. LEVEMIR [Concomitant]
  9. APIDRA [Concomitant]
  10. AMLODIPINE [Concomitant]
  11. IBUPROFEN [Concomitant]
  12. INVERSINE [Concomitant]
  13. PROTONIX [Concomitant]

REACTIONS (2)
  - Pancreatitis [Recovered/Resolved]
  - Liver function test abnormal [Unknown]
